FAERS Safety Report 9852524 (Version 1)
Quarter: 2014Q1

REPORT INFORMATION
  Report Type: Spontaneous
  Country: US (occurrence: None)
  Receive Date: 20140127
  Receipt Date: 20140127
  Transmission Date: 20141002
  Serious: Yes (Hospitalization)
  Sender: FDA-Public Use
  Company Number: 2014P1000360

PATIENT
  Age: 80 Year
  Sex: Female

DRUGS (2)
  1. HYDROMORPHONE [Suspect]
     Indication: PROCEDURAL PAIN
     Route: 037
  2. GABAPENTIN [Concomitant]

REACTIONS (6)
  - Dizziness [None]
  - Unresponsive to stimuli [None]
  - Miosis [None]
  - Somnolence [None]
  - Hypopnoea [None]
  - Blood pressure decreased [None]
